FAERS Safety Report 9477476 (Version 2)
Quarter: 2013Q4

REPORT INFORMATION
  Report Type: Report from Study
  Country: CA (occurrence: CA)
  Receive Date: 20130827
  Receipt Date: 20131210
  Transmission Date: 20140711
  Serious: Yes (Hospitalization)
  Sender: FDA-Public Use
  Company Number: CA-ROCHE-1266763

PATIENT
  Age: 19 Year
  Sex: Male

DRUGS (1)
  1. PULMOZYME [Suspect]
     Indication: CYSTIC FIBROSIS
     Route: 045
     Dates: start: 201306, end: 201308

REACTIONS (3)
  - Pneumothorax [Unknown]
  - Cough [Unknown]
  - Increased upper airway secretion [Unknown]
